FAERS Safety Report 5669539-5 (Version None)
Quarter: 2008Q1

REPORT INFORMATION
  Report Type: 
  Country: None (occurrence: None)
  Receive Date: 20080317
  Receipt Date: 20080306
  Transmission Date: 20080703
  Serious: Yes (Hospitalization)
  Sender: FDA-Public Use
  Company Number: FR-JNJFOC-20080301282

PATIENT
  Age: 60 Year
  Sex: Male

DRUGS (3)
  1. TAVANIC [Suspect]
     Indication: ACUTE RESPIRATORY DISTRESS SYNDROME
     Route: 042
  2. PREVISCAN [Interacting]
     Indication: ATRIAL FIBRILLATION
     Route: 048
  3. PIPERACILLIN SODIUM AND TAZOBACTAM SODIUM [Suspect]
     Indication: ACUTE RESPIRATORY DISTRESS SYNDROME
     Route: 042

REACTIONS (2)
  - DRUG INTERACTION [None]
  - PROTHROMBIN TIME RATIO DECREASED [None]
